FAERS Safety Report 13608165 (Version 1)
Quarter: 2017Q2

REPORT INFORMATION
  Report Type: Spontaneous
  Country: JP (occurrence: JP)
  Receive Date: 20170602
  Receipt Date: 20170602
  Transmission Date: 20170830
  Serious: Yes (Other)
  Sender: FDA-Public Use
  Company Number: JP-009507513-1610JPN003821

PATIENT

DRUGS (2)
  1. PEGINTRON [Suspect]
     Active Substance: PEGINTERFERON ALFA-2B
     Indication: CHRONIC HEPATITIS C
     Dosage: UNK
     Route: 058
  2. REBETOL [Suspect]
     Active Substance: RIBAVIRIN
     Indication: CHRONIC HEPATITIS C
     Dosage: UNK
     Route: 048

REACTIONS (9)
  - Retinopathy [Unknown]
  - Anaemia [Unknown]
  - Cerebral haemorrhage [Unknown]
  - Neurosis [Unknown]
  - Malaise [Unknown]
  - Thrombocytopenia [Unknown]
  - Decreased appetite [Unknown]
  - Adverse event [Unknown]
  - Interstitial lung disease [Unknown]
